FAERS Safety Report 7910701-6 (Version None)
Quarter: 2011Q4

REPORT INFORMATION
  Report Type: 
  Country: None (occurrence: None)
  Receive Date: 20111111
  Receipt Date: 20111102
  Transmission Date: 20120403
  Serious: Yes (Hospitalization)
  Sender: FDA-Public Use
  Company Number: GB-UCBSA-044805

PATIENT

DRUGS (1)
  1. NEUPRO [Suspect]
     Dosage: STRENGTH :4 MG
     Route: 062

REACTIONS (2)
  - HOSPITALISATION [None]
  - CONDITION AGGRAVATED [None]
